FAERS Safety Report 9028022 (Version 1)
Quarter: 2013Q1

REPORT INFORMATION
  Report Type: Spontaneous
  Country: US (occurrence: None)
  Receive Date: 20130114
  Receipt Date: 20130114
  Transmission Date: 20140127
  Serious: Yes (Hospitalization)
  Sender: FDA-Public Use
  Company Number: None

PATIENT
  Age: 68 Year
  Sex: Male
  Weight: 84.5 kg

DRUGS (2)
  1. LISINOPRIL [Suspect]
     Indication: PAIN
     Route: 048
     Dates: start: 20030404, end: 20121215
  2. ETODOLAC [Suspect]
     Indication: PAIN
     Route: 048
     Dates: start: 20121213

REACTIONS (4)
  - Lip swelling [None]
  - Swelling face [None]
  - Local swelling [None]
  - Musculoskeletal pain [None]
